FAERS Safety Report 14840748 (Version 1)
Quarter: 2018Q2

REPORT INFORMATION
  Report Type: Spontaneous
  Country: US (occurrence: US)
  Receive Date: 20180503
  Receipt Date: 20180503
  Transmission Date: 20180711
  Serious: No
  Sender: FDA-Public Use
  Company Number: US-PFIZER INC-2018178558

PATIENT
  Age: 46 Year
  Sex: Female
  Weight: 68 kg

DRUGS (2)
  1. RETINOL [Concomitant]
     Active Substance: RETINOL
     Indication: MILIA
     Dosage: 1 DF, 1X/DAY, AT NIGHT ON HER FACE
     Dates: start: 201801, end: 201802
  2. EUCRISA [Suspect]
     Active Substance: CRISABOROLE
     Indication: ECZEMA
     Dosage: 1 DF, 3X/DAY, AS NEEDED
     Dates: start: 201801, end: 201802

REACTIONS (1)
  - Drug ineffective [Recovered/Resolved]

NARRATIVE: CASE EVENT DATE: 201801
